FAERS Safety Report 6409538-9 (Version None)
Quarter: 2009Q4

REPORT INFORMATION
  Report Type: 
  Country: None (occurrence: None)
  Receive Date: 20091022
  Receipt Date: 20091014
  Transmission Date: 20100525
  Serious: Yes (Hospitalization, Other)
  Sender: FDA-Public Use
  Company Number: US-ELI_LILLY_AND_COMPANY-US200910003523

PATIENT
  Sex: Female

DRUGS (10)
  1. HUMULIN R [Suspect]
     Dates: end: 19890101
  2. HUMALOG [Suspect]
     Dosage: UNK, AS NEEDED
  3. HUMALOG [Suspect]
     Dosage: UNK, AS NEEDED
  4. HUMALOG [Suspect]
     Dosage: UNK, AS NEEDED
  5. DIOVAN [Concomitant]
  6. EFFEXOR [Concomitant]
  7. LIPITOR [Concomitant]
  8. ASPIRIN [Concomitant]
     Indication: CARDIAC DISORDER
  9. SPIRONOLACTONE [Concomitant]
  10. KLONOPIN [Concomitant]
     Indication: NERVOUSNESS

REACTIONS (9)
  - ANXIETY [None]
  - BLINDNESS [None]
  - BLOOD GLUCOSE DECREASED [None]
  - BLOOD GLUCOSE INCREASED [None]
  - EXPIRED DRUG ADMINISTERED [None]
  - MYOCARDIAL INFARCTION [None]
  - NERVOUSNESS [None]
  - PANIC ATTACK [None]
  - THERAPY REGIMEN CHANGED [None]
